FAERS Safety Report 19900702 (Version 3)
Quarter: 2021Q4

REPORT INFORMATION
  Report Type: Spontaneous
  Country: US (occurrence: US)
  Receive Date: 20210929
  Receipt Date: 20211217
  Transmission Date: 20220303
  Serious: No
  Sender: FDA-Public Use
  Company Number: US-PFIZER INC-2021559772

PATIENT
  Age: 15 Year
  Sex: Male
  Weight: 24.95 kg

DRUGS (5)
  1. GENOTROPIN [Suspect]
     Active Substance: SOMATROPIN
     Indication: Short stature
     Dosage: 1.1 MG, DAILY 7 DAYS PER WEEK
  2. GENOTROPIN [Suspect]
     Active Substance: SOMATROPIN
     Indication: Renal disorder
     Dosage: 1 MG ALTERNATING 1.2 MG
  3. GENOTROPIN [Suspect]
     Active Substance: SOMATROPIN
     Dosage: 1 MG
     Dates: start: 202108
  4. GENOTROPIN [Suspect]
     Active Substance: SOMATROPIN
     Dosage: 12 MG, 1X/DAY (ADMINISTERED ONCE DAILY AROUND THE BELLY (2 INCHES FROM BELLY BUTTON) OR OUTER LEGS)
     Dates: start: 20210831, end: 20210902
  5. GENOTROPIN [Suspect]
     Active Substance: SOMATROPIN
     Dosage: (USES 1 ONE DAY AND SUPPOSED TO DO 1.1 THE NEXT DAY ACTUALLY GIVES 1 ONE DAY AND 1.2 THE NEXT )
     Dates: start: 20210831

REACTIONS (4)
  - Product prescribing error [Unknown]
  - Intentional product misuse [Unknown]
  - Drug dose omission by device [Unknown]
  - Device leakage [Unknown]

NARRATIVE: CASE EVENT DATE: 20210801
